FAERS Safety Report 7664762-2 (Version None)
Quarter: 2011Q3

REPORT INFORMATION
  Report Type: 
  Country: None (occurrence: None)
  Receive Date: 20110806
  Receipt Date: 20110131
  Transmission Date: 20111222
  Serious: No
  Sender: FDA-Public Use
  Company Number: US-ABBOTT-11P-163-0701432-00

PATIENT
  Sex: Male
  Weight: 113.5 kg

DRUGS (3)
  1. BENICAR [Concomitant]
     Indication: PRODUCT USED FOR UNKNOWN INDICATION
     Route: 048
  2. NIASPAN [Suspect]
     Route: 048
     Dates: end: 20110128
  3. NIASPAN [Suspect]
     Indication: BLOOD CHOLESTEROL INCREASED
     Route: 048
     Dates: start: 20091201

REACTIONS (3)
  - FLUSHING [None]
  - FEELING HOT [None]
  - PARAESTHESIA [None]
